FAERS Safety Report 5471379-7 (Version None)
Quarter: 2007Q3

REPORT INFORMATION
  Report Type: 
  Country: None (occurrence: None)
  Receive Date: 20070928
  Receipt Date: 20060912
  Transmission Date: 20080115
  Serious: No
  Sender: FDA-Public Use
  Company Number: US-BRISTOL-MYERS SQUIBB COMPANY-13509732

PATIENT
  Age: 41 Year
  Sex: Male
  Weight: 100 kg

DRUGS (3)
  1. DEFINITY [Suspect]
     Indication: ECHOCARDIOGRAM
     Route: 042
  2. METOPROLOL SUCCINATE [Concomitant]
  3. AVANDIA [Concomitant]

REACTIONS (3)
  - PRURITUS [None]
  - THROAT TIGHTNESS [None]
  - URTICARIA [None]
